FAERS Safety Report 20602444 (Version 1)
Quarter: 2022Q1

REPORT INFORMATION
  Report Type: Spontaneous
  Country: CN (occurrence: None)
  Receive Date: 20220316
  Receipt Date: 20220316
  Transmission Date: 20220423
  Serious: Yes (Hospitalization)
  Sender: FDA-Public Use
  Company Number: CN-Eisai Medical Research-EC-2022-110392

PATIENT
  Age: 55 Year
  Sex: Female
  Weight: 41 kg

DRUGS (7)
  1. HALAVEN [Suspect]
     Active Substance: ERIBULIN MESYLATE
     Indication: Breast cancer metastatic
     Route: 041
     Dates: start: 202201, end: 20220204
  2. CISPLATIN [Suspect]
     Active Substance: CISPLATIN
     Indication: Breast cancer metastatic
     Route: 033
     Dates: start: 20220204, end: 20220204
  3. VINORELBINE [Concomitant]
     Active Substance: VINORELBINE TARTRATE
     Indication: Breast cancer metastatic
     Dosage: DOSE AND FREQUENCY UNKNOWN
     Route: 065
     Dates: start: 2017, end: 2017
  4. VINORELBINE [Concomitant]
     Active Substance: VINORELBINE TARTRATE
     Dosage: DOSE AND FREQUENCY UNKNOWN
     Route: 065
     Dates: start: 2021
  5. DOCETAXEL [Concomitant]
     Active Substance: DOCETAXEL
     Indication: Breast cancer metastatic
     Dosage: DOSE AND FREQUENCY UNKNOWN
     Route: 065
     Dates: start: 2021, end: 2021
  6. CARBOPLATIN [Concomitant]
     Active Substance: CARBOPLATIN
     Indication: Breast cancer metastatic
     Dosage: DOSE AND FREQUENCY UNKNOWN
     Route: 065
     Dates: start: 2021, end: 2021
  7. CAPECITABINE [Concomitant]
     Active Substance: CAPECITABINE
     Indication: Breast cancer metastatic
     Dosage: DOSE AND FREQUENCY UNKNOWN
     Route: 065
     Dates: start: 2021

REACTIONS (1)
  - Myelosuppression [Recovering/Resolving]

NARRATIVE: CASE EVENT DATE: 20220214
